FAERS Safety Report 5768045-7 (Version None)
Quarter: 2008Q2

REPORT INFORMATION
  Report Type: 
  Country: None (occurrence: None)
  Receive Date: 20080612
  Receipt Date: 20070830
  Transmission Date: 20081010
  Serious: No
  Sender: FDA-Public Use
  Company Number: US-ASTRAZENECA-2007UW18443

PATIENT
  Age: 57 Year
  Sex: Female
  Weight: 83.9 kg

DRUGS (6)
  1. FASLODEX [Suspect]
     Indication: BREAST CANCER METASTATIC
     Route: 030
     Dates: start: 20070515, end: 20070627
  2. DETROL [Concomitant]
  3. PRILOSEC [Concomitant]
     Route: 048
     Dates: start: 20050101
  4. ADVIL [Concomitant]
     Indication: BONE PAIN
  5. ADVIL [Concomitant]
     Indication: ARTHRALGIA
  6. TYLENOL [Concomitant]

REACTIONS (4)
  - ANAEMIA [None]
  - PLATELET COUNT DECREASED [None]
  - RED BLOOD CELL COUNT DECREASED [None]
  - THROMBOCYTOPENIA [None]
